FAERS Safety Report 13775319 (Version 2)
Quarter: 2017Q3

REPORT INFORMATION
  Report Type: Spontaneous
  Country: US (occurrence: US)
  Receive Date: 20170721
  Receipt Date: 20170817
  Transmission Date: 20171127
  Serious: No
  Sender: FDA-Public Use
  Company Number: US-BAYER-2017-137704

PATIENT
  Sex: Female

DRUGS (1)
  1. MIRENA [Suspect]
     Active Substance: LEVONORGESTREL
     Indication: CONTRACEPTION
     Dosage: 20 MCG/24HR, CONT
     Route: 015
     Dates: start: 201707

REACTIONS (4)
  - Migraine [Unknown]
  - Nausea [Unknown]
  - Vomiting [Unknown]
  - Sleep disorder [Unknown]

NARRATIVE: CASE EVENT DATE: 201707
